FAERS Safety Report 11524638 (Version 4)
Quarter: 2019Q4

REPORT INFORMATION
  Report Type: Spontaneous
  Country: US (occurrence: US)
  Receive Date: 20150918
  Receipt Date: 20191018
  Transmission Date: 20200122
  Serious: Yes (Hospitalization)
  Sender: FDA-Public Use
  Company Number: US-009507513-1506USA006995

PATIENT
  Age: 49 Year
  Sex: Female
  Weight: 64.4 kg

DRUGS (2)
  1. VANCOMYCIN [Suspect]
     Active Substance: VANCOMYCIN
     Indication: ENDOCARDITIS STAPHYLOCOCCAL
     Dosage: 1 GRAM, BID
     Route: 042
     Dates: start: 20090427, end: 20090517
  2. DAPTOMYCIN. [Suspect]
     Active Substance: DAPTOMYCIN
     Indication: ENDOCARDITIS STAPHYLOCOCCAL
     Dosage: 7.8 MG/KG, QD
     Route: 042
     Dates: start: 20090520, end: 20090521

REACTIONS (2)
  - Drug reaction with eosinophilia and systemic symptoms [Unknown]
  - Glossodynia [Unknown]
